FAERS Safety Report 10958595 (Version 5)
Quarter: 2015Q3

REPORT INFORMATION
  Report Type: Spontaneous
  Country: US (occurrence: US)
  Receive Date: 20150326
  Receipt Date: 20150715
  Transmission Date: 20151125
  Serious: Yes (Hospitalization, Other)
  Sender: FDA-Public Use
  Company Number: US-GLAXOSMITHKLINE-US2015GSK039572

PATIENT
  Age: 65 Year
  Sex: Female
  Weight: 81.63 kg

DRUGS (1)
  1. BENLYSTA [Suspect]
     Active Substance: BELIMUMAB
     Indication: SYSTEMIC LUPUS ERYTHEMATOSUS
     Dosage: 800 MG (10 MG/KG)
     Route: 042
     Dates: start: 20140410

REACTIONS (4)
  - Neck surgery [Unknown]
  - Hospitalisation [Recovered/Resolved]
  - Pain [Unknown]
  - Therapeutic nerve ablation [Unknown]

NARRATIVE: CASE EVENT DATE: 20140722
